FAERS Safety Report 18839593 (Version 1)
Quarter: 2021Q1

REPORT INFORMATION
  Report Type: Report from Study
  Country: US (occurrence: US)
  Receive Date: 20210203
  Receipt Date: 20210203
  Transmission Date: 20210419
  Serious: No
  Sender: FDA-Public Use
  Company Number: US-EXELIXIS-CABO-20034283

PATIENT
  Sex: Female

DRUGS (7)
  1. COMETRIQ [Suspect]
     Active Substance: CABOZANTINIB S-MALATE
     Indication: THYROID CANCER
     Dosage: 20 MG, QD
     Route: 048
     Dates: start: 20200728
  2. AVAPRO [Concomitant]
     Active Substance: IRBESARTAN
  3. ATENOLOL. [Concomitant]
     Active Substance: ATENOLOL
  4. ROCALTROL [Concomitant]
     Active Substance: CALCITRIOL
  5. COZAAR [Concomitant]
     Active Substance: LOSARTAN POTASSIUM
  6. SYNTHROID [Concomitant]
     Active Substance: LEVOTHYROXINE SODIUM
  7. PROTONIX [Concomitant]
     Active Substance: PANTOPRAZOLE SODIUM

REACTIONS (3)
  - Oral pain [Unknown]
  - Pain in extremity [Unknown]
  - Blood pressure increased [Unknown]
